FAERS Safety Report 8247325-X (Version None)
Quarter: 2012Q1

REPORT INFORMATION
  Report Type: 
  Country: None (occurrence: None)
  Receive Date: 20120328
  Receipt Date: 20120328
  Transmission Date: 20120608
  Serious: No
  Sender: FDA-Public Use
  Company Number: None

PATIENT
  Age: 43 Year
  Sex: Female

DRUGS (2)
  1. AZITHROMYCIN [Suspect]
     Dates: start: 20101112, end: 20101115
  2. TRIMETHOPRIM + SULFAMETHOXAZOLE [Suspect]
     Dates: start: 20101128, end: 20101203

REACTIONS (11)
  - LIVER INJURY [None]
  - BLOOD ALKALINE PHOSPHATASE INCREASED [None]
  - JAUNDICE [None]
  - URINARY TRACT INFECTION [None]
  - CHOLESTASIS [None]
  - VOMITING [None]
  - NAUSEA [None]
  - CHILLS [None]
  - MALAISE [None]
  - CHEST PAIN [None]
  - BACK PAIN [None]
